FAERS Safety Report 10907473 (Version 1)
Quarter: 2015Q1

REPORT INFORMATION
  Report Type: Spontaneous
  Country: DE (occurrence: DE)
  Receive Date: 20150312
  Receipt Date: 20150312
  Transmission Date: 20150721
  Serious: Yes (Death, Other)
  Sender: FDA-Public Use
  Company Number: DE-TEVA-545014ISR

PATIENT
  Age: 6 Year
  Sex: Female

DRUGS (6)
  1. FLUDARABINE [Suspect]
     Active Substance: FLUDARABINE PHOSPHATE
  2. OKT3 [Suspect]
     Active Substance: MUROMONAB-CD3
  3. ETOPOSIDE. [Suspect]
     Active Substance: ETOPOSIDE
  4. ATG-FRESENIUS [Suspect]
     Active Substance: LAPINE T-LYMPHOCYTE IMMUNE GLOBULIN
  5. THIOTEPA. [Suspect]
     Active Substance: THIOTEPA
  6. ANTI-CD3 MAB MUROMONAB-CD3 (CLONE OKT3) [Suspect]
     Active Substance: MUROMONAB-CD3

REACTIONS (5)
  - Thrombocytopenia [Unknown]
  - Cytomegalovirus viraemia [Unknown]
  - Transplant rejection [Unknown]
  - Pneumonia [Fatal]
  - Adenovirus infection [Unknown]
